FAERS Safety Report 11904892 (Version 1)
Quarter: 2016Q1

REPORT INFORMATION
  Report Type: Spontaneous
  Country: GB (occurrence: US)
  Receive Date: 20160108
  Receipt Date: 20160108
  Transmission Date: 20160526
  Serious: Yes (Other)
  Sender: FDA-Public Use
  Company Number: US-ROCHE-1623414

PATIENT
  Age: 37 Year
  Sex: Female

DRUGS (3)
  1. HEPARIN SULFATE [Concomitant]
     Active Substance: SODIUM HEPARAN SULFATE (PORCINE; 5500 MW)
     Dosage: 15/U/KG/HR
     Route: 042
  2. ACTILYSE [Suspect]
     Active Substance: ALTEPLASE
     Indication: ISCHAEMIC STROKE
     Dosage: }2{3 H
     Route: 042
  3. WARFARIN [Concomitant]
     Active Substance: WARFARIN
     Indication: ANTICOAGULANT THERAPY
     Route: 048

REACTIONS (2)
  - Maternal exposure during pregnancy [Unknown]
  - Uterine haematoma [Unknown]
